FAERS Safety Report 7225764-3 (Version None)
Quarter: 2011Q1

REPORT INFORMATION
  Report Type: 
  Country: None (occurrence: None)
  Receive Date: 20110113
  Receipt Date: 20110104
  Transmission Date: 20110831
  Serious: Yes (Other)
  Sender: FDA-Public Use
  Company Number: DE-ASTRAZENECA-2011SE01148

PATIENT
  Sex: Female

DRUGS (1)
  1. SEROQUEL [Suspect]
     Dosage: MIXED AS KNOCK OUT DRUG INTO THE DRINK
     Route: 048
     Dates: start: 20090807

REACTIONS (2)
  - VICTIM OF SEXUAL ABUSE [None]
  - OFF LABEL USE [None]
